FAERS Safety Report 9013302 (Version 1)
Quarter: 2013Q1

REPORT INFORMATION
  Report Type: Spontaneous
  Country: US (occurrence: None)
  Receive Date: 20130107
  Receipt Date: 20130107
  Transmission Date: 20140127
  Serious: Yes (Life-Threatening, Hospitalization, Disabling)
  Sender: FDA-Public Use
  Company Number: None

PATIENT
  Age: 18 Year
  Sex: Female
  Weight: 97.52 kg

DRUGS (1)
  1. SPRINTEC [Suspect]
     Dosage: 1 TABLET ONCE DAILY PO
     Route: 048
     Dates: start: 20110401, end: 20111004

REACTIONS (2)
  - Deep vein thrombosis [None]
  - Venous insufficiency [None]
